FAERS Safety Report 6193035-2 (Version None)
Quarter: 2009Q2

REPORT INFORMATION
  Report Type: 
  Country: None (occurrence: None)
  Receive Date: 20090518
  Receipt Date: 20090402
  Transmission Date: 20091009
  Serious: No
  Sender: FDA-Public Use
  Company Number: US-TYCO HEALTHCARE/MALLINCKRODT-T200900810

PATIENT
  Sex: Male

DRUGS (1)
  1. METHADOSE DISPERSIBLE [Suspect]
     Dosage: 200 MG, QD

REACTIONS (1)
  - SKIN ODOUR ABNORMAL [None]
